FAERS Safety Report 7984155-8 (Version None)
Quarter: 2011Q4

REPORT INFORMATION
  Report Type: 
  Country: None (occurrence: None)
  Receive Date: 20111216
  Receipt Date: 20111205
  Transmission Date: 20120403
  Serious: Yes (Hospitalization)
  Sender: FDA-Public Use
  Company Number: US-NOVOPROD-340970

PATIENT

DRUGS (9)
  1. NOVORAPID FLEXPEN [Suspect]
     Indication: TYPE 2 DIABETES MELLITUS
     Dosage: 97 U, QD
     Route: 058
     Dates: start: 20110803
  2. METFORMIN HCL [Concomitant]
     Indication: TYPE 2 DIABETES MELLITUS
     Dosage: 2000 MG, QD
     Route: 048
  3. INSULIN DETEMIR FLEXPEN [Suspect]
     Indication: TYPE 2 DIABETES MELLITUS
     Dosage: 105 U, QD
     Route: 058
     Dates: start: 20110526
  4. HYZAAR [Concomitant]
     Indication: HYPERTENSION
     Dosage: 100/25 MG, QD
     Route: 048
     Dates: start: 20090309
  5. SIMVASTATIN [Concomitant]
     Indication: HYPERLIPIDAEMIA
     Dosage: 80 MG, QD
     Route: 048
     Dates: start: 20090216
  6. EFFEXOR [Concomitant]
     Indication: DEPRESSION
     Dosage: 300 MG, QD
     Dates: start: 20110920
  7. KLOR-CON [Concomitant]
     Indication: HYPERTENSION
     Dosage: 20 MEQ, QD
     Route: 048
     Dates: start: 20090501
  8. FELODIPINE [Concomitant]
     Indication: HYPERTENSION
     Dosage: 5 MG, QD
     Dates: start: 20090224
  9. PREVACID [Concomitant]
     Indication: GASTROOESOPHAGEAL REFLUX DISEASE
     Dosage: 30 MG, QD
     Route: 048
     Dates: start: 20100301

REACTIONS (1)
  - ABSCESS [None]
